FAERS Safety Report 19509349 (Version 1)
Quarter: 2021Q3

REPORT INFORMATION
  Report Type: Spontaneous
  Country: US (occurrence: US)
  Receive Date: 20210709
  Receipt Date: 20210709
  Transmission Date: 20211014
  Serious: No
  Sender: FDA-Public Use
  Company Number: US-PRINSTON PHARMACEUTICAL INC.-2021PRN00139

PATIENT
  Sex: Female

DRUGS (1)
  1. LISINOPRIL. [Suspect]
     Active Substance: LISINOPRIL
     Dosage: UNK
     Route: 048
     Dates: start: 202103, end: 202103

REACTIONS (5)
  - Gastrooesophageal reflux disease [Unknown]
  - Atypical pneumonia [Unknown]
  - Throat irritation [Not Recovered/Not Resolved]
  - Vomiting [Not Recovered/Not Resolved]
  - Cough [Not Recovered/Not Resolved]

NARRATIVE: CASE EVENT DATE: 202103
